FAERS Safety Report 17363651 (Version 7)
Quarter: 2021Q4

REPORT INFORMATION
  Report Type: Spontaneous
  Country: IT (occurrence: IT)
  Receive Date: 20200203
  Receipt Date: 20211011
  Transmission Date: 20220303
  Serious: Yes (Hospitalization, Other)
  Sender: FDA-Public Use
  Company Number: IT-JNJFOC-20200149313

PATIENT
  Age: 56 Year
  Sex: Female
  Weight: 66 kg

DRUGS (18)
  1. VELCADE [Suspect]
     Active Substance: BORTEZOMIB
     Indication: Plasma cell myeloma
     Dosage: 1.75 MILLIGRAM
     Route: 058
     Dates: start: 20191028, end: 20191104
  2. VELCADE [Suspect]
     Active Substance: BORTEZOMIB
     Dosage: 1.75 MILLIGRAM
     Route: 058
     Dates: start: 20191223, end: 20200302
  3. DEXAMETHASONE [Suspect]
     Active Substance: DEXAMETHASONE
     Indication: Plasma cell myeloma
     Dosage: 40 MILLIGRAM
     Route: 048
     Dates: start: 20191028, end: 20200512
  4. DARATUMUMAB [Suspect]
     Active Substance: DARATUMUMAB
     Indication: Plasma cell myeloma
     Dosage: 1800 MILLIGRAM
     Route: 058
     Dates: start: 20191028, end: 20200224
  5. LENALIDOMIDE [Suspect]
     Active Substance: LENALIDOMIDE
     Indication: Plasma cell myeloma
     Dosage: 10 MILLIGRAM
     Route: 048
     Dates: start: 20191028, end: 20200305
  6. ACETYLCYSTEINE [Concomitant]
     Active Substance: ACETYLCYSTEINE
     Indication: Hepatic enzyme increased
     Dosage: UNK, QD
     Route: 065
     Dates: start: 20191106
  7. BARACLUDE [Concomitant]
     Active Substance: ENTECAVIR
     Indication: Hepatic enzyme increased
     Dosage: 0.5 MILLIGRAM, QD
     Route: 048
     Dates: start: 20191107
  8. ENOXAPARIN SODIUM [Concomitant]
     Active Substance: ENOXAPARIN SODIUM
     Indication: Thrombosis prophylaxis
     Dosage: UNK, QD
     Route: 058
  9. DEURSIL [Concomitant]
     Active Substance: URSODIOL
     Indication: Hyperuricaemia
     Dosage: 300 MILLIGRAM, TID
     Route: 048
  10. FENTANYL [Concomitant]
     Active Substance: FENTANYL
     Indication: Pain
     Dosage: UNK
     Route: 062
  11. TRAMADOL HYDROCHLORIDE [Concomitant]
     Active Substance: TRAMADOL HYDROCHLORIDE
     Indication: Pain
     Dosage: 100 MILLIGRAM
     Route: 030
  12. LACTOBACILLUS RHAMNOSUS [Concomitant]
     Active Substance: LACTOBACILLUS RHAMNOSUS
     Indication: Escherichia urinary tract infection
     Dosage: 30 MILLIGRAM, BID
     Route: 048
  13. FILGRASTIM [Concomitant]
     Active Substance: FILGRASTIM
     Indication: Neutropenia
     Dosage: UNK, QD
     Route: 062
  14. PANTOPRAZOLE SODIUM [Concomitant]
     Active Substance: PANTOPRAZOLE SODIUM
     Indication: Gastrointestinal disorder therapy
     Dosage: 20 MILLIGRAM, QD
     Route: 048
  15. PREDNISONE [Concomitant]
     Active Substance: PREDNISONE
     Indication: Plasma cell myeloma
     Dosage: 10 MILLIGRAM, BID
     Route: 048
  16. LASIX [Concomitant]
     Active Substance: FUROSEMIDE
     Indication: Oedema
     Dosage: 20 MILLIGRAM, BID
     Route: 048
  17. CARDIOASPIRINA [Concomitant]
     Active Substance: ASPIRIN
     Indication: Prophylaxis
     Dosage: 100 MILLIGRAM, QD
     Route: 048
  18. FEBUXOSTAT [Concomitant]
     Active Substance: FEBUXOSTAT
     Indication: Hyperuricaemia
     Dosage: 80 MILLIGRAM, QD
     Route: 048

REACTIONS (2)
  - Cytomegalovirus infection reactivation [Recovered/Resolved]
  - Hepatic enzyme increased [Recovered/Resolved]

NARRATIVE: CASE EVENT DATE: 20191028
